FAERS Safety Report 4993333-1 (Version None)
Quarter: 2006Q2

REPORT INFORMATION
  Report Type: 
  Country: None (occurrence: None)
  Receive Date: 20060505
  Receipt Date: 20060406
  Transmission Date: 20061013
  Serious: Yes (Life-Threatening, Hospitalization)
  Sender: FDA-Public Use
  Company Number: PHEH2006US04591

PATIENT
  Age: 23 Year
  Sex: Male
  Weight: 62.8 kg

DRUGS (4)
  1. EXJADE [Suspect]
     Indication: BLOOD IRON INCREASED
     Dosage: 1500 MG, QD
     Route: 048
     Dates: start: 20060329, end: 20060405
  2. ASCORBIC ACID [Concomitant]
     Indication: BLOOD IRON INCREASED
     Dosage: 250 MG, QD
     Route: 048
  3. FOLIC ACID [Concomitant]
     Indication: SICKLE CELL ANAEMIA
     Dosage: 1 MG, QD
     Route: 048
  4. ATROVENT [Concomitant]
     Indication: ASTHMA
     Dosage: 1-2 PUFFS, PRN

REACTIONS (10)
  - ALANINE AMINOTRANSFERASE INCREASED [None]
  - ASPARTATE AMINOTRANSFERASE INCREASED [None]
  - BLOOD BILIRUBIN INCREASED [None]
  - BLOOD SODIUM DECREASED [None]
  - EOSINOPHIL PERCENTAGE INCREASED [None]
  - HYPOTENSION [None]
  - LEUKOCYTOSIS [None]
  - PLATELET COUNT INCREASED [None]
  - PYREXIA [None]
  - RASH GENERALISED [None]
